FAERS Safety Report 19213260 (Version 5)
Quarter: 2022Q2

REPORT INFORMATION
  Report Type: Spontaneous
  Country: ES (occurrence: ES)
  Receive Date: 20210504
  Receipt Date: 20220608
  Transmission Date: 20220720
  Serious: No
  Sender: FDA-Public Use
  Company Number: ES-JNJFOC-20210427450

PATIENT
  Age: 94 Year
  Sex: Female

DRUGS (26)
  1. LORAZEPAM [Suspect]
     Active Substance: LORAZEPAM
     Indication: Drug withdrawal syndrome
     Dosage: UNK, AS NEEDED
  2. FENTANYL [Suspect]
     Active Substance: FENTANYL
     Indication: Back pain
     Dosage: 25 UG
  3. FENTANYL [Suspect]
     Active Substance: FENTANYL
     Dosage: 75 UG/72 HOURS
  4. CITALOPRAM [Suspect]
     Active Substance: CITALOPRAM HYDROBROMIDE
     Indication: Drug withdrawal syndrome
     Dosage: ALMOST 20MG
     Route: 065
  5. CITALOPRAM [Suspect]
     Active Substance: CITALOPRAM HYDROBROMIDE
     Indication: Insomnia
     Dosage: 5-10 MG OVER THE PREVIOUS WEEKLY DOSE
  6. CITALOPRAM [Suspect]
     Active Substance: CITALOPRAM HYDROBROMIDE
     Indication: Anxiety
  7. DONEPEZIL HYDROCHLORIDE [Concomitant]
     Active Substance: DONEPEZIL HYDROCHLORIDE
     Dosage: UNK
     Route: 065
  8. SPIRONOLACTONE [Concomitant]
     Active Substance: SPIRONOLACTONE
     Dosage: UNK
     Route: 065
  9. ATORVASTATIN CALCIUM [Concomitant]
     Active Substance: ATORVASTATIN CALCIUM
     Dosage: UNK
     Route: 065
  10. PANTOPRAZOLE [Concomitant]
     Active Substance: PANTOPRAZOLE
     Dosage: UNK
     Route: 065
  11. TELMISARTAN [Concomitant]
     Active Substance: TELMISARTAN
     Dosage: UNK
     Route: 065
  12. BUPRENORPHINE TRANSDERMAL SYSTEM [Concomitant]
     Active Substance: BUPRENORPHINE
     Indication: Analgesic therapy
     Dosage: INCREASING DOSES (UP TO 70 UG)
     Route: 062
  13. CINITAPRIDE [Concomitant]
     Active Substance: CINITAPRIDE
     Dosage: UNK
     Route: 065
  14. METAMIZOLE [Concomitant]
     Active Substance: METAMIZOLE
     Dosage: UNK
     Route: 065
  15. ATENOLOL [Concomitant]
     Active Substance: ATENOLOL
     Dosage: UNK
     Route: 065
  16. FUROSEMIDE [Concomitant]
     Active Substance: FUROSEMIDE
     Dosage: UNK
     Route: 065
  17. LACTITOL [Concomitant]
     Active Substance: LACTITOL
     Dosage: UNK
     Route: 065
  18. MANIDIPINE [Concomitant]
     Active Substance: MANIDIPINE
     Dosage: UNK
     Route: 065
  19. ACETAMINOPHEN [Concomitant]
     Active Substance: ACETAMINOPHEN
     Indication: Back pain
     Dosage: UNK
     Route: 065
  20. FENTANYL [Concomitant]
     Active Substance: FENTANYL
     Indication: Back pain
     Dosage: 75UG/72 HOUR
     Route: 062
  21. FENTANYL [Concomitant]
     Active Substance: FENTANYL
     Dosage: 25 UG
     Route: 062
  22. FENTANYL [Concomitant]
     Active Substance: FENTANYL
     Dosage: 75UG EVERY 48 HOURS AT FIRST, THEN RANDOMLY ACCORDING TO SYMPTOMS
     Route: 062
  23. LEVODOPA [Concomitant]
     Active Substance: LEVODOPA
     Indication: Gait apraxia
     Dosage: UNK
     Route: 065
  24. ZOLPIDEM [Concomitant]
     Active Substance: ZOLPIDEM TARTRATE
     Indication: Anxiety
     Dosage: UNK
     Route: 065
  25. ZOLPIDEM [Concomitant]
     Active Substance: ZOLPIDEM TARTRATE
     Indication: Headache
  26. ZOLPIDEM [Concomitant]
     Active Substance: ZOLPIDEM TARTRATE
     Indication: Insomnia

REACTIONS (6)
  - Insomnia [Unknown]
  - Somnolence [Unknown]
  - Irregular sleep wake rhythm disorder [Unknown]
  - Drug ineffective for unapproved indication [Unknown]
  - Product use in unapproved indication [Unknown]
  - Off label use [Unknown]
